FAERS Safety Report 24605019 (Version 1)
Quarter: 2024Q4

REPORT INFORMATION
  Report Type: Spontaneous
  Country: CH (occurrence: CH)
  Receive Date: 20241111
  Receipt Date: 20241111
  Transmission Date: 20250115
  Serious: Yes (Other)
  Sender: TEVA
  Company Number: None

PATIENT
  Age: 41 Year
  Sex: Male

DRUGS (63)
  1. METHOTREXATE [Suspect]
     Active Substance: METHOTREXATE
     Indication: Product used for unknown indication
     Dosage: TIME INTERVAL: TOTAL: METHOTREXATE TEVA
     Route: 040
     Dates: start: 20240713, end: 20240713
  2. METHOTREXATE [Suspect]
     Active Substance: METHOTREXATE
     Indication: Product used for unknown indication
     Dosage: TIME INTERVAL: TOTAL
     Route: 040
     Dates: start: 20240727, end: 20240727
  3. METHOTREXATE [Suspect]
     Active Substance: METHOTREXATE
     Indication: Product used for unknown indication
     Dosage: TIME INTERVAL: TOTAL
     Route: 040
     Dates: start: 20240810, end: 20240810
  4. METHOTREXATE [Suspect]
     Active Substance: METHOTREXATE
     Indication: Product used for unknown indication
     Dosage: TIME INTERVAL: TOTAL
     Route: 040
     Dates: start: 20240713, end: 20240713
  5. ENOXAPARIN SODIUM [Concomitant]
     Active Substance: ENOXAPARIN SODIUM
     Indication: Product used for unknown indication
     Route: 065
  6. LEUCOVORIN CALCIUM [Concomitant]
     Active Substance: LEUCOVORIN CALCIUM
     Indication: Product used for unknown indication
     Route: 065
     Dates: start: 20240714, end: 20240714
  7. LEUCOVORIN CALCIUM [Concomitant]
     Active Substance: LEUCOVORIN CALCIUM
     Indication: Product used for unknown indication
     Dosage: 25 MG 5X/DAY
     Route: 065
     Dates: start: 20240715, end: 20240716
  8. VITAMIN D3 [Concomitant]
     Active Substance: CHOLECALCIFEROL
     Indication: Product used for unknown indication
     Route: 065
  9. VINCRISTINE [Suspect]
     Active Substance: VINCRISTINE
     Indication: Product used for unknown indication
     Dosage: TIME INTERVAL: TOTAL
     Route: 040
     Dates: start: 20240613, end: 20240613
  10. VINCRISTINE [Suspect]
     Active Substance: VINCRISTINE
     Indication: Product used for unknown indication
     Dosage: TIME INTERVAL: TOTAL
     Route: 040
     Dates: start: 20240713, end: 20240713
  11. VINCRISTINE [Suspect]
     Active Substance: VINCRISTINE
     Indication: Product used for unknown indication
     Dosage: TIME INTERVAL: TOTAL: VINCRISTINE TEVA
     Route: 040
     Dates: start: 20240523, end: 20240523
  12. VINCRISTINE [Suspect]
     Active Substance: VINCRISTINE
     Indication: Product used for unknown indication
     Dosage: TIME INTERVAL: TOTAL
     Route: 040
     Dates: start: 20240530, end: 20240530
  13. VINCRISTINE [Suspect]
     Active Substance: VINCRISTINE
     Indication: Product used for unknown indication
     Dosage: TIME INTERVAL: TOTAL
     Route: 040
     Dates: start: 20240606, end: 20240606
  14. DAUNORUBICIN [Concomitant]
     Active Substance: DAUNORUBICIN
     Indication: Product used for unknown indication
     Route: 065
     Dates: start: 20240523, end: 20240525
  15. DAUNORUBICIN [Concomitant]
     Active Substance: DAUNORUBICIN
     Indication: Product used for unknown indication
     Dosage: DT=100 MG
     Route: 065
     Dates: start: 20240606, end: 20240607
  16. ASPARAGINASE [Concomitant]
     Active Substance: ASPARAGINASE
     Indication: Product used for unknown indication
     Dosage: D20, D22, D24, D26, D28; DT=50000 IU
     Route: 065
     Dates: start: 20240612, end: 20240620
  17. METHYLPREDNISOLONE [Concomitant]
     Active Substance: METHYLPREDNISOLONE
     Indication: Product used for unknown indication
     Dosage: TIME INTERVAL: TOTAL
     Route: 037
     Dates: start: 20240603, end: 20240603
  18. METHYLPREDNISOLONE [Concomitant]
     Active Substance: METHYLPREDNISOLONE
     Indication: Product used for unknown indication
     Dosage: TIME INTERVAL: TOTAL
     Route: 037
     Dates: start: 20240606, end: 20240606
  19. METHYLPREDNISOLONE [Concomitant]
     Active Substance: METHYLPREDNISOLONE
     Indication: Product used for unknown indication
     Dosage: TIME INTERVAL: TOTAL
     Route: 037
     Dates: start: 20240527, end: 20240527
  20. METHYLPREDNISOLONE [Concomitant]
     Active Substance: METHYLPREDNISOLONE
     Indication: Product used for unknown indication
     Dosage: TIME INTERVAL: TOTAL
     Route: 037
     Dates: start: 20240809, end: 20240809
  21. METHYLPREDNISOLONE [Concomitant]
     Active Substance: METHYLPREDNISOLONE
     Indication: Product used for unknown indication
     Dosage: TIME INTERVAL: TOTAL
     Route: 037
     Dates: start: 20240530, end: 20240530
  22. METHYLPREDNISOLONE [Concomitant]
     Active Substance: METHYLPREDNISOLONE
     Indication: Product used for unknown indication
     Dosage: TIME INTERVAL: TOTAL
     Route: 037
     Dates: start: 20240716, end: 20240716
  23. METHYLPREDNISOLONE [Concomitant]
     Active Substance: METHYLPREDNISOLONE
     Indication: Product used for unknown indication
     Dosage: TIME INTERVAL: TOTAL
     Route: 037
     Dates: start: 20240726, end: 20240726
  24. METHYLPREDNISOLONE [Concomitant]
     Active Substance: METHYLPREDNISOLONE
     Indication: Product used for unknown indication
     Dosage: TIME INTERVAL: TOTAL
     Route: 037
     Dates: start: 20240524, end: 20240524
  25. METHYLPREDNISOLONE [Concomitant]
     Active Substance: METHYLPREDNISOLONE
     Indication: Product used for unknown indication
     Dosage: TIME INTERVAL: TOTAL
     Route: 037
     Dates: start: 20240521, end: 20240521
  26. Vitamine b complexe [Concomitant]
     Indication: Product used for unknown indication
     Route: 065
  27. ETOPOPHOS [Concomitant]
     Active Substance: ETOPOSIDE PHOSPHATE
     Indication: Product used for unknown indication
     Dosage: DT = 132 MG
     Route: 065
     Dates: start: 20240727, end: 20240728
  28. MERCAPTOPURINE [Concomitant]
     Active Substance: MERCAPTOPURINE
     Indication: Product used for unknown indication
     Route: 065
     Dates: start: 20240713, end: 20240720
  29. MERCAPTOPURINE [Concomitant]
     Active Substance: MERCAPTOPURINE
     Indication: Product used for unknown indication
     Dosage: 25 MG 5X/DAY
     Route: 065
     Dates: start: 20240715, end: 20240716
  30. Dexamethasone s ph [Concomitant]
     Indication: Product used for unknown indication
     Route: 065
     Dates: start: 20240628, end: 20240629
  31. ONDANSETRON [Concomitant]
     Active Substance: ONDANSETRON
     Indication: Product used for unknown indication
     Route: 065
  32. VALACYCLOVIR HYDROCHLORIDE [Concomitant]
     Active Substance: VALACYCLOVIR HYDROCHLORIDE
     Indication: Product used for unknown indication
     Route: 065
  33. THIAMINE HYDROCHLORIDE [Concomitant]
     Active Substance: THIAMINE HYDROCHLORIDE
     Indication: Product used for unknown indication
     Route: 065
  34. AMPHOTERICIN B [Concomitant]
     Active Substance: AMPHOTERICIN B
     Indication: Product used for unknown indication
     Route: 065
  35. CYTARABINE [Suspect]
     Active Substance: CYTARABINE
     Indication: Product used for unknown indication
     Dosage: TIME INTERVAL: TOTAL
     Route: 037
     Dates: start: 20240527, end: 20240527
  36. CYTARABINE [Suspect]
     Active Substance: CYTARABINE
     Indication: Product used for unknown indication
     Dosage: TIME INTERVAL: TOTAL
     Route: 037
     Dates: start: 20240530, end: 20240530
  37. CYTARABINE [Suspect]
     Active Substance: CYTARABINE
     Indication: Product used for unknown indication
     Dosage: TIME INTERVAL: TOTAL
     Route: 037
     Dates: start: 20240524, end: 20240524
  38. CYTARABINE [Suspect]
     Active Substance: CYTARABINE
     Indication: Product used for unknown indication
     Dosage: TIME INTERVAL: TOTAL
     Route: 037
     Dates: start: 20240603, end: 20240603
  39. CYTARABINE [Suspect]
     Active Substance: CYTARABINE
     Indication: Product used for unknown indication
     Dosage: TIME INTERVAL: TOTAL
     Route: 037
     Dates: start: 20240726, end: 20240726
  40. CYTARABINE [Suspect]
     Active Substance: CYTARABINE
     Indication: Product used for unknown indication
     Dosage: TIME INTERVAL: TOTAL
     Route: 037
     Dates: start: 20240809, end: 20240809
  41. CYTARABINE [Suspect]
     Active Substance: CYTARABINE
     Indication: Product used for unknown indication
     Dosage: TIME INTERVAL: TOTAL
     Route: 037
     Dates: start: 20240521, end: 20240521
  42. CYTARABINE [Suspect]
     Active Substance: CYTARABINE
     Indication: Product used for unknown indication
     Route: 040
     Dates: start: 20240628, end: 20240629
  43. CYTARABINE [Suspect]
     Active Substance: CYTARABINE
     Indication: Product used for unknown indication
     Dosage: TIME INTERVAL: TOTAL
     Route: 037
     Dates: start: 20240606, end: 20240606
  44. CYTARABINE [Suspect]
     Active Substance: CYTARABINE
     Indication: Product used for unknown indication
     Dosage: TIME INTERVAL: TOTAL
     Route: 037
     Dates: start: 20240716, end: 20240716
  45. OXAZEPAM [Concomitant]
     Active Substance: OXAZEPAM
     Indication: Product used for unknown indication
     Route: 065
  46. TRAMADOL [Concomitant]
     Active Substance: TRAMADOL
     Indication: Product used for unknown indication
     Route: 065
  47. CYCLOPHOSPHAMIDE [Suspect]
     Active Substance: CYCLOPHOSPHAMIDE
     Indication: Product used for unknown indication
     Dosage: TIME INTERVAL: TOTAL: D1-D2
     Route: 040
     Dates: start: 20240727, end: 20240728
  48. MAGALDRATE [Concomitant]
     Active Substance: MAGALDRATE
     Indication: Product used for unknown indication
     Route: 065
  49. METHOTREXATE [Suspect]
     Active Substance: METHOTREXATE
     Indication: Product used for unknown indication
     Dosage: TIME INTERVAL: TOTAL
     Route: 037
     Dates: start: 20240716, end: 20240716
  50. METHOTREXATE [Suspect]
     Active Substance: METHOTREXATE
     Indication: Product used for unknown indication
     Dosage: TIME INTERVAL: TOTAL
     Route: 037
     Dates: start: 20240521, end: 20240521
  51. METHOTREXATE [Suspect]
     Active Substance: METHOTREXATE
     Indication: Product used for unknown indication
     Dosage: TIME INTERVAL: TOTAL
     Route: 037
     Dates: start: 20240809, end: 20240809
  52. METHOTREXATE [Suspect]
     Active Substance: METHOTREXATE
     Indication: Product used for unknown indication
     Dosage: TIME INTERVAL: TOTAL
     Route: 037
     Dates: start: 20240524, end: 20240524
  53. METHOTREXATE [Suspect]
     Active Substance: METHOTREXATE
     Indication: Product used for unknown indication
     Dosage: TIME INTERVAL: TOTAL
     Route: 037
     Dates: start: 20240527, end: 20240527
  54. METHOTREXATE [Suspect]
     Active Substance: METHOTREXATE
     Indication: Product used for unknown indication
     Dosage: TIME INTERVAL: TOTAL
     Route: 037
     Dates: start: 20240603, end: 20240603
  55. METHOTREXATE [Suspect]
     Active Substance: METHOTREXATE
     Indication: Product used for unknown indication
     Dosage: TIME INTERVAL: TOTAL
     Route: 037
     Dates: start: 20240726, end: 20240726
  56. METHOTREXATE [Suspect]
     Active Substance: METHOTREXATE
     Indication: Product used for unknown indication
     Dosage: TIME INTERVAL: TOTAL
     Route: 037
     Dates: start: 20240530, end: 20240530
  57. METHOTREXATE [Suspect]
     Active Substance: METHOTREXATE
     Indication: Product used for unknown indication
     Dosage: TIME INTERVAL: TOTAL
     Route: 037
     Dates: start: 20240606, end: 20240606
  58. METHOTREXATE [Suspect]
     Active Substance: METHOTREXATE
     Indication: Product used for unknown indication
     Dosage: TIME INTERVAL: TOTAL: METHOTREXATE GRY
     Route: 037
     Dates: start: 20240517, end: 20240517
  59. MESNA [Concomitant]
     Active Substance: MESNA
     Indication: Product used for unknown indication
     Route: 065
     Dates: start: 20240606, end: 20240606
  60. MESNA [Concomitant]
     Active Substance: MESNA
     Indication: Product used for unknown indication
     Route: 040
     Dates: start: 20240727, end: 20240728
  61. MESNA [Concomitant]
     Active Substance: MESNA
     Indication: Product used for unknown indication
     Route: 065
     Dates: start: 20240523, end: 20240523
  62. FILGRASTIM [Concomitant]
     Active Substance: FILGRASTIM
     Indication: Product used for unknown indication
     Route: 065
     Dates: start: 20240705, end: 20240709
  63. CETIRIZINE [Concomitant]
     Active Substance: CETIRIZINE HYDROCHLORIDE
     Indication: Product used for unknown indication
     Route: 065

REACTIONS (6)
  - Muscular weakness [Not Recovered/Not Resolved]
  - Back pain [Not Recovered/Not Resolved]
  - Livedo reticularis [Not Recovered/Not Resolved]
  - Polyneuropathy [Not Recovered/Not Resolved]
  - Pain in extremity [Not Recovered/Not Resolved]
  - Hypoaesthesia [Not Recovered/Not Resolved]

NARRATIVE: CASE EVENT DATE: 20240712
